FAERS Safety Report 14466304 (Version 2)
Quarter: 2018Q1

REPORT INFORMATION
  Report Type: Spontaneous
  Country: FR (occurrence: FR)
  Receive Date: 20180131
  Receipt Date: 20180309
  Transmission Date: 20180509
  Serious: Yes (Life-Threatening)
  Sender: FDA-Public Use
  Company Number: FR-AUROBINDO-AUR-APL-2018-003118

PATIENT
  Age: 53 Year
  Sex: Female
  Weight: 50 kg

DRUGS (4)
  1. TRAMADOL. [Suspect]
     Active Substance: TRAMADOL
     Indication: INTENTIONAL OVERDOSE
     Dosage: ()
     Route: 048
     Dates: start: 20171007, end: 20171007
  2. LYRICA [Suspect]
     Active Substance: PREGABALIN
     Dosage: 75 MG 1 PER DAY
  3. BROMAZEPAM [Suspect]
     Active Substance: BROMAZEPAM
     Indication: INTENTIONAL OVERDOSE
     Dosage: 6 MILLIGRAM
     Route: 048
     Dates: start: 20171007, end: 20171007
  4. LYRICA [Suspect]
     Active Substance: PREGABALIN
     Indication: INTENTIONAL OVERDOSE
     Dosage: 100 MG, 1 PER DAY
     Route: 048
     Dates: start: 20171007, end: 20171007

REACTIONS (5)
  - Electrocardiogram QT prolonged [Recovered/Resolved]
  - Stress cardiomyopathy [Recovering/Resolving]
  - Intentional overdose [Recovered/Resolved with Sequelae]
  - Cardiogenic shock [Recovered/Resolved]
  - Coma [Recovered/Resolved]

NARRATIVE: CASE EVENT DATE: 20171007
